FAERS Safety Report 5356599-4 (Version None)
Quarter: 2007Q2

REPORT INFORMATION
  Report Type: 
  Country: None (occurrence: None)
  Receive Date: 20070614
  Receipt Date: 20070601
  Transmission Date: 20071010
  Serious: Yes (Hospitalization)
  Sender: FDA-Public Use
  Company Number: PHBS2007US09409

PATIENT
  Age: 49 Year
  Sex: Male

DRUGS (8)
  1. PAMIDRONATE DISODIUM [Suspect]
     Indication: HYPERCALCAEMIA OF MALIGNANCY
     Dosage: 90 MG, ONCE/SINGLE
  2. GLEEVEC [Suspect]
     Indication: GASTROINTESTINAL STROMAL TUMOUR
  3. IFOSFAMIDE [Suspect]
     Indication: GASTROINTESTINAL STROMAL TUMOUR
     Dosage: 2500 MG/M2 ON DAYS 1-3
  4. DOXORUBICIN HCL [Suspect]
     Dosage: 20 MG/M2 ON DAY 1-3
  5. MESNA [Suspect]
     Dosage: 600 MG/M2 ON DAY 1-3
  6. LORATADINE [Concomitant]
  7. DARBEPOETIN ALFA [Concomitant]
  8. METHYLPHENIDATE HCL [Concomitant]
     Indication: ATTENTION DEFICIT/HYPERACTIVITY DISORDER

REACTIONS (15)
  - BLOOD ALBUMIN DECREASED [None]
  - BLOOD CREATININE INCREASED [None]
  - BLOOD PH DECREASED [None]
  - HAEMATURIA [None]
  - HYPOKALAEMIA [None]
  - HYPOMAGNESAEMIA [None]
  - KIDNEY ENLARGEMENT [None]
  - OEDEMA PERIPHERAL [None]
  - PROTEINURIA [None]
  - PYREXIA [None]
  - RENAL ARTERIOSCLEROSIS [None]
  - RENAL ATROPHY [None]
  - RENAL FAILURE ACUTE [None]
  - RENAL TUBULAR NECROSIS [None]
  - URINARY RETENTION [None]
